FAERS Safety Report 8972382 (Version 1)
Quarter: 2012Q4

REPORT INFORMATION
  Report Type: 
  Country: JP (occurrence: JP)
  Receive Date: 20121218
  Receipt Date: 20121218
  Transmission Date: 20130627
  Serious: Yes (Hospitalization)
  Sender: FDA-Public Use
  Company Number: JP-TEVA-375383ISR

PATIENT
  Age: 7 None
  Sex: Male

DRUGS (4)
  1. CISPLATIN [Suspect]
     Indication: GASTRIC CANCER STAGE III
     Dosage: 60 mg/m2
     Route: 065
     Dates: start: 200904
  2. GIMERACIL, OTERACIL, TEGAFUR [Suspect]
     Indication: GASTRIC CANCER STAGE III
     Dosage: 80 mg/m2
     Route: 065
     Dates: start: 200904
  3. IRINOTECAN [Suspect]
     Indication: GASTRIC CANCER STAGE III
     Dosage: 150 mg/m2
     Route: 065
  4. DEXAMETHASONE [Concomitant]
     Indication: MALAISE

REACTIONS (3)
  - Pneumocystis jiroveci pneumonia [Not Recovered/Not Resolved]
  - Acute respiratory failure [Not Recovered/Not Resolved]
  - Pyrexia [Not Recovered/Not Resolved]
